FAERS Safety Report 7070853-X (Version None)
Quarter: 2010Q4

REPORT INFORMATION
  Report Type: 
  Country: None (occurrence: None)
  Receive Date: 20101029
  Receipt Date: 20101015
  Transmission Date: 20110411
  Serious: Yes (Other)
  Sender: FDA-Public Use
  Company Number: PHHY2010CL69207

PATIENT
  Age: 55 Year
  Sex: Female

DRUGS (2)
  1. ACLASTA [Suspect]
     Dosage: 5 MG
     Route: 042
     Dates: start: 20090301
  2. EUTIROX [Concomitant]
     Dosage: UNK

REACTIONS (1)
  - BLOOD PARATHYROID HORMONE INCREASED [None]
